APPROVED DRUG PRODUCT: FLUDEOXYGLUCOSE F18
Active Ingredient: FLUDEOXYGLUCOSE F-18
Strength: 20-300mCi/ML
Dosage Form/Route: INJECTABLE;INTRAVENOUS
Application: A203591 | Product #001 | TE Code: AP
Applicant: SOFIE CO DBA SOFIE (FKA ZEVACOR PHARMA INC)
Approved: Aug 31, 2015 | RLD: No | RS: No | Type: RX